FAERS Safety Report 7495235-8 (Version None)
Quarter: 2011Q2

REPORT INFORMATION
  Report Type: 
  Country: None (occurrence: None)
  Receive Date: 20110522
  Receipt Date: 20110509
  Transmission Date: 20111010
  Serious: No
  Sender: FDA-Public Use
  Company Number: US-ELI_LILLY_AND_COMPANY-US201012002752

PATIENT
  Sex: Female
  Weight: 76.19 kg

DRUGS (7)
  1. FORTEO [Suspect]
     Dosage: 20 UG, QD
     Route: 058
     Dates: end: 20110321
  2. ATENOLOL [Concomitant]
  3. AMLODIPINE [Concomitant]
  4. FORTEO [Suspect]
     Indication: OSTEOPOROSIS
     Dosage: 20 UG, DAILY (1/D)
     Route: 058
     Dates: start: 20101007
  5. FORTEO [Suspect]
     Dosage: 20 UG, OTHER
     Route: 058
  6. BACLOFEN [Concomitant]
  7. VOLTAREN [Concomitant]

REACTIONS (7)
  - BONE PAIN [None]
  - EAR PAIN [None]
  - EXERCISE TOLERANCE DECREASED [None]
  - FATIGUE [None]
  - PAIN IN EXTREMITY [None]
  - MUSCULOSKELETAL PAIN [None]
  - INCORRECT DOSE ADMINISTERED [None]
